FAERS Safety Report 24162109 (Version 1)
Quarter: 2024Q3

REPORT INFORMATION
  Report Type: Spontaneous
  Country: MA (occurrence: MA)
  Receive Date: 20240801
  Receipt Date: 20240801
  Transmission Date: 20241016
  Serious: Yes (Hospitalization, Other)
  Sender: BIOVITRUM
  Company Number: MA-BIOVITRUM-2024-MA-010210

PATIENT
  Age: 59 Year
  Weight: 47 kg

DRUGS (2)
  1. ANAKINRA [Suspect]
     Active Substance: ANAKINRA
     Indication: Familial mediterranean fever
     Dosage: 100MG/0.67ML EVERY OTHER DAY
     Route: 058
  2. ANAKINRA [Suspect]
     Active Substance: ANAKINRA
     Indication: Renal amyloidosis

REACTIONS (6)
  - Product use issue [Unknown]
  - Familial mediterranean fever [Unknown]
  - Renal amyloidosis [Unknown]
  - Condition aggravated [Unknown]
  - Product dose omission issue [Unknown]
  - Off label use [Unknown]
